FAERS Safety Report 16434180 (Version 2)
Quarter: 2019Q3

REPORT INFORMATION
  Report Type: Spontaneous
  Country: US (occurrence: US)
  Receive Date: 20190614
  Receipt Date: 20190721
  Transmission Date: 20191004
  Serious: No
  Sender: FDA-Public Use
  Company Number: US-JNJFOC-20190614748

PATIENT
  Sex: Male
  Weight: 57.2 kg

DRUGS (1)
  1. ZYRTEC [Suspect]
     Active Substance: CETIRIZINE HYDROCHLORIDE
     Indication: SEASONAL ALLERGY
     Dosage: LAST ADMINISTRATION DATE: 10-JUN-2019
     Route: 048
     Dates: start: 20190529

REACTIONS (1)
  - Drug ineffective [Unknown]
